FAERS Safety Report 10865940 (Version 1)
Quarter: 2015Q1

REPORT INFORMATION
  Report Type: Spontaneous
  Country: AT (occurrence: AT)
  Receive Date: 20150224
  Receipt Date: 20150224
  Transmission Date: 20150721
  Serious: Yes (Death, Life-Threatening, Hospitalization, Disabling, Other)
  Sender: FDA-Public Use
  Company Number: AT-GILEAD-2015-0130182

PATIENT
  Age: 45 Year
  Sex: Male
  Weight: 102 kg

DRUGS (4)
  1. LASILACTON [Concomitant]
     Active Substance: FUROSEMIDE\SPIRONOLACTONE
     Indication: ASCITES
     Dosage: 1 DF, UNK
     Route: 048
     Dates: start: 201409, end: 20141118
  2. COPEGUS [Concomitant]
     Active Substance: RIBAVIRIN
     Indication: CHRONIC HEPATITIS C
     Dosage: 1200 MG, UNK
     Route: 048
     Dates: start: 20141020, end: 20141118
  3. SOVALDI [Suspect]
     Active Substance: SOFOSBUVIR
     Indication: CHRONIC HEPATITIS C
     Dosage: 400 MG, UNK
     Route: 048
     Dates: start: 20141020, end: 20141118
  4. OLYSIO [Concomitant]
     Active Substance: SIMEPREVIR
     Indication: CHRONIC HEPATITIS C
     Dosage: 150 MG, UNK
     Route: 048
     Dates: start: 20141020, end: 20141118

REACTIONS (5)
  - Hepatic failure [Fatal]
  - Nausea [Unknown]
  - Urinary tract infection [Unknown]
  - Fatigue [Unknown]
  - Hepatorenal syndrome [Fatal]

NARRATIVE: CASE EVENT DATE: 201410
